FAERS Safety Report 23265745 (Version 1)
Quarter: 2023Q4

REPORT INFORMATION
  Report Type: Spontaneous
  Country: GB (occurrence: GB)
  Receive Date: 20231206
  Receipt Date: 20231206
  Transmission Date: 20240109
  Serious: Yes (Other)
  Sender: FDA-Public Use
  Company Number: None

PATIENT

DRUGS (20)
  1. ATOVAQUONE [Suspect]
     Active Substance: ATOVAQUONE
     Indication: Microscopic polyangiitis
     Dosage: 750 MG, BID,BD
     Route: 048
     Dates: start: 20230815, end: 20231003
  2. CYCLOPHOSPHAMIDE [Suspect]
     Active Substance: CYCLOPHOSPHAMIDE
     Indication: Microscopic polyangiitis
     Dosage: 150 MG, QD,OD
     Route: 048
     Dates: start: 20230822, end: 20231003
  3. CYCLOPHOSPHAMIDE [Suspect]
     Active Substance: CYCLOPHOSPHAMIDE
     Dosage: 125 MG, QD,OD
     Route: 048
     Dates: start: 20230808, end: 20230822
  4. TAVNEOS [Suspect]
     Active Substance: AVACOPAN
     Indication: Microscopic polyangiitis
     Dosage: 30 MG, BID
     Route: 048
     Dates: start: 20230829, end: 20231003
  5. BUTYLSCOPOLAMINE BROMIDE [Concomitant]
     Active Substance: BUTYLSCOPOLAMINE BROMIDE
     Indication: Product used for unknown indication
     Dosage: 10 MG,PRN
     Route: 065
     Dates: start: 20230629, end: 20230731
  6. DOXAZOSIN [Concomitant]
     Active Substance: DOXAZOSIN MESYLATE
     Indication: Product used for unknown indication
     Dosage: 4 MG, QD,OD
     Route: 048
     Dates: start: 20230905, end: 20230919
  7. FELODIPINE [Concomitant]
     Active Substance: FELODIPINE
     Indication: Product used for unknown indication
     Dosage: 10 MG, QD,OD
     Route: 048
  8. FELODIPINE [Concomitant]
     Active Substance: FELODIPINE
     Dosage: 10 MG, QD,OD
     Route: 065
     Dates: start: 20230629
  9. IRBESARTAN [Concomitant]
     Active Substance: IRBESARTAN
     Indication: Product used for unknown indication
     Dosage: 75 MG, QD
     Route: 048
     Dates: start: 20230920
  10. IRBESARTAN [Concomitant]
     Active Substance: IRBESARTAN
     Dosage: 75 MG, QD,OD
     Route: 048
  11. IRBESARTAN [Concomitant]
     Active Substance: IRBESARTAN
     Dosage: 300 MG, QD,OD
     Route: 065
     Dates: start: 20230629, end: 20230731
  12. OMEPRAZOLE [Concomitant]
     Active Substance: OMEPRAZOLE
     Indication: Product used for unknown indication
     Dosage: 40 MG,OD
     Route: 048
     Dates: start: 20230804
  13. PREDNISOLONE [Concomitant]
     Active Substance: PREDNISOLONE
     Indication: Product used for unknown indication
     Dosage: 50 MG, QD,OD
     Route: 048
     Dates: start: 20230822, end: 20230823
  14. PREDNISOLONE [Concomitant]
     Active Substance: PREDNISOLONE
     Dosage: 30 MG, QD,OD
     Route: 048
     Dates: start: 20230823, end: 20230830
  15. PREDNISOLONE [Concomitant]
     Active Substance: PREDNISOLONE
     Dosage: 20 MG, QD,OD
     Route: 065
     Dates: start: 20231004, end: 20231024
  16. PREDNISOLONE [Concomitant]
     Active Substance: PREDNISOLONE
     Dosage: 10 MG, QD,OD
     Route: 048
     Dates: start: 20231003, end: 20231004
  17. PREDNISOLONE [Concomitant]
     Active Substance: PREDNISOLONE
     Dosage: 15 MG, QD,OD
     Route: 065
     Dates: start: 20231024, end: 20231114
  18. PREDNISOLONE [Concomitant]
     Active Substance: PREDNISOLONE
     Dosage: 60 MG, QD,OD
     Route: 048
     Dates: start: 20230807, end: 20230821
  19. PREDNISOLONE [Concomitant]
     Active Substance: PREDNISOLONE
     Dosage: 10 MG, QD,OD
     Route: 048
     Dates: start: 20231114
  20. PREDNISOLONE [Concomitant]
     Active Substance: PREDNISOLONE
     Dosage: 20 MG, QD,OD
     Route: 048
     Dates: start: 20230830, end: 20230926

REACTIONS (5)
  - Drug-induced liver injury [Recovering/Resolving]
  - Cholestasis [Recovering/Resolving]
  - Rash [Recovering/Resolving]
  - Serum ferritin increased [Recovering/Resolving]
  - Aspartate aminotransferase increased [Recovering/Resolving]

NARRATIVE: CASE EVENT DATE: 20230101
